FAERS Safety Report 23475194 (Version 1)
Quarter: 2024Q1

REPORT INFORMATION
  Report Type: Report from Study
  Country: CA (occurrence: CA)
  Receive Date: 20240204
  Receipt Date: 20240204
  Transmission Date: 20240409
  Serious: No
  Sender: FDA-Public Use
  Company Number: CA-EXELIXIS-CABO-22058800

PATIENT
  Sex: Male

DRUGS (5)
  1. CABOMETYX [Suspect]
     Active Substance: CABOZANTINIB S-MALATE
     Indication: Renal cell carcinoma
     Dosage: 60 MG, QD
     Route: 048
     Dates: start: 20220121, end: 20220627
  2. INLYTA [Concomitant]
     Active Substance: AXITINIB
  3. KEYTRUDA [Concomitant]
     Active Substance: PEMBROLIZUMAB
  4. HYDROMORPHONE [Concomitant]
     Active Substance: HYDROMORPHONE
  5. MIRTAZAPINE [Concomitant]
     Active Substance: MIRTAZAPINE

REACTIONS (1)
  - Drug intolerance [Unknown]
